FAERS Safety Report 7392840-4 (Version None)
Quarter: 2011Q2

REPORT INFORMATION
  Report Type: 
  Country: None (occurrence: None)
  Receive Date: 20110404
  Receipt Date: 20110322
  Transmission Date: 20111010
  Serious: Yes (Hospitalization, Disabling, Other)
  Sender: FDA-Public Use
  Company Number: US-PFIZER INC-2010056761

PATIENT
  Sex: Male
  Weight: 75.737 kg

DRUGS (28)
  1. DILTIAZEM HCL [Suspect]
     Dosage: 360 MG, 1X/DAY
     Route: 048
     Dates: start: 20050101
  2. QUINAPRIL HYDROCHLORIDE [Concomitant]
     Indication: HYPERTENSION
     Dosage: 40 MG, 1X/DAY
     Route: 048
     Dates: start: 20030101
  3. AMBIEN [Concomitant]
     Route: 065
  4. NORVASC [Suspect]
     Indication: HYPERTENSION
     Dosage: 10 MG, 1X/DAY
     Route: 048
  5. DILTIAZEM HCL [Suspect]
     Indication: HYPERTENSION
     Dosage: 180 MG, 2X/DAY
     Route: 048
  6. DIAMOX [Interacting]
     Indication: HYPERTENSION
     Dosage: 1 MG, 1X/DAY
     Route: 048
  7. ZETIA [Concomitant]
     Indication: CARDIAC DISORDER
     Dosage: 10 MG, 1X/DAY
     Route: 048
     Dates: start: 20060101
  8. ARICEPT [Interacting]
     Indication: DEMENTIA
     Dosage: 10 MG, 1X/DAY
     Route: 048
     Dates: start: 20100512, end: 20100601
  9. ARICEPT [Interacting]
     Dosage: 5 MG, DAILY
     Route: 048
     Dates: start: 20100601
  10. ARICEPT [Interacting]
     Dosage: 5 MG, 1X/DAY
     Route: 048
     Dates: start: 20100501
  11. METOPROLOL TARTRATE [Concomitant]
     Indication: BLOOD PRESSURE ABNORMAL
     Dosage: 100 MG, 1X/DAY
     Route: 048
     Dates: start: 20050101
  12. ALBUTEROL [Concomitant]
  13. XANAX [Interacting]
     Dosage: 0.5 MG, AS NEEDED
     Route: 048
  14. TOPROL-XL [Interacting]
     Indication: HYPERTENSION
     Dosage: 200 MG, 1X/DAY
     Route: 048
  15. AVODART [Concomitant]
     Indication: PROSTATIC DISORDER
     Dosage: 0.5 MG, 1X/DAY
     Route: 048
     Dates: start: 20070101
  16. FUROSEMIDE [Concomitant]
     Dosage: 80 MG, UNK
     Route: 065
  17. VITAMIN D [Concomitant]
     Indication: VITAMIN D DECREASED
     Dosage: 800 MG, UNK
     Dates: start: 20100501
  18. ARICEPT [Interacting]
     Indication: MEMORY IMPAIRMENT
     Dosage: 5 MG, DAILY
     Route: 048
     Dates: start: 20100414
  19. POTASSIUM [Suspect]
  20. NAMENDA [Interacting]
     Dosage: 5 MG, 2 TABLETS TWO TIMES A DAY
     Route: 048
     Dates: start: 20100601
  21. UROXATRAL [Concomitant]
     Indication: PROSTATIC DISORDER
     Dosage: 10 MG, AT BED TIME
     Route: 048
     Dates: start: 20091101
  22. UROXATRAL [Concomitant]
     Indication: URINE FLOW DECREASED
  23. MULTI-VITAMINS [Concomitant]
  24. ADVAIR DISKUS 100/50 [Concomitant]
     Dosage: 500 MG, UNK
  25. NAMENDA [Interacting]
     Indication: DEMENTIA
     Dosage: 5 MG, 1X/DAY
     Route: 048
     Dates: start: 20100918
  26. ALPRAZOLAM [Concomitant]
     Indication: NERVOUS SYSTEM DISORDER
     Dosage: 0.5 MG, 1X/DAY
     Route: 048
     Dates: start: 19980101
  27. ALPRAZOLAM [Concomitant]
     Indication: ANXIETY
  28. FUROSEMIDE [Concomitant]
     Dosage: 40 MG, UNK

REACTIONS (32)
  - DRUG INTERACTION [None]
  - OEDEMA PERIPHERAL [None]
  - DYSURIA [None]
  - BLADDER DISCOMFORT [None]
  - MALAISE [None]
  - NIGHTMARE [None]
  - ABASIA [None]
  - DEMENTIA [None]
  - COGNITIVE DISORDER [None]
  - ABDOMINAL DISCOMFORT [None]
  - DYSSTASIA [None]
  - STRESS [None]
  - PNEUMONIA BACTERIAL [None]
  - URINE FLOW DECREASED [None]
  - VITAMIN D DECREASED [None]
  - SOMNOLENCE [None]
  - VISION BLURRED [None]
  - GAIT DISTURBANCE [None]
  - RESPIRATORY DISORDER [None]
  - ERYTHEMA [None]
  - NAUSEA [None]
  - HEADACHE [None]
  - RHINORRHOEA [None]
  - ASTHENIA [None]
  - EYE IRRITATION [None]
  - DIARRHOEA [None]
  - HYPOTONIA [None]
  - DIZZINESS [None]
  - BACK PAIN [None]
  - INSOMNIA [None]
  - COLD SWEAT [None]
  - BALANCE DISORDER [None]
